FAERS Safety Report 16640078 (Version 1)
Quarter: 2019Q3

REPORT INFORMATION
  Report Type: Spontaneous
  Country: AT (occurrence: AT)
  Receive Date: 20190727
  Receipt Date: 20190727
  Transmission Date: 20191004
  Serious: Yes (Hospitalization, Other)
  Sender: FDA-Public Use
  Company Number: AT-AMGEN-AUTSP2019116938

PATIENT
  Age: 28 Year
  Sex: Female

DRUGS (5)
  1. ROCALTROL [Concomitant]
     Active Substance: CALCITRIOL
  2. CALCIUM [Concomitant]
     Active Substance: CALCIUM
  3. ALLOPURINOL. [Suspect]
     Active Substance: ALLOPURINOL
     Indication: PRODUCT USED FOR UNKNOWN INDICATION
     Route: 065
  4. MIMPARA [Suspect]
     Active Substance: CINACALCET HYDROCHLORIDE
     Indication: PRODUCT USED FOR UNKNOWN INDICATION
     Dosage: 60 MILLIGRAM
     Route: 065
  5. CELLCEPT [Suspect]
     Active Substance: MYCOPHENOLATE MOFETIL\MYCOPHENOLATE MOFETIL HYDROCHLORIDE
     Indication: PRODUCT USED FOR UNKNOWN INDICATION
     Route: 065

REACTIONS (6)
  - Hypocalcaemia [Unknown]
  - Myelofibrosis [Unknown]
  - Refractory cytopenia with unilineage dysplasia [Unknown]
  - Metabolic disorder [Unknown]
  - Pancytopenia [Unknown]
  - Nausea [Unknown]

NARRATIVE: CASE EVENT DATE: 201906
